FAERS Safety Report 23829929 (Version 1)
Quarter: 2024Q2

REPORT INFORMATION
  Report Type: Spontaneous
  Country: IN (occurrence: IN)
  Receive Date: 20240508
  Receipt Date: 20240508
  Transmission Date: 20240716
  Serious: Yes (Life-Threatening, Other)
  Sender: FDA-Public Use
  Company Number: IN-ALKEM LABORATORIES LIMITED-IN-ALKEM-2024-02117

PATIENT
  Age: 35 Year
  Sex: Male

DRUGS (11)
  1. AZATHIOPRINE [Suspect]
     Active Substance: AZATHIOPRINE
     Indication: Myasthenia gravis
     Dosage: 50 MILLIGRAM, QD (DAILY)
     Route: 065
  2. AZATHIOPRINE [Suspect]
     Active Substance: AZATHIOPRINE
     Dosage: 100 MILLIGRAM (OVER A PERIOD OF 2 MONTHS)
     Route: 065
  3. AZATHIOPRINE [Suspect]
     Active Substance: AZATHIOPRINE
     Dosage: 50 MILLIGRAM (REDUCED DOSE)
     Route: 065
  4. PREDNISOLONE [Suspect]
     Active Substance: PREDNISOLONE
     Indication: Myasthenia gravis
     Dosage: 20 MILLIGRAM
     Route: 065
  5. PREDNISOLONE [Suspect]
     Active Substance: PREDNISOLONE
     Dosage: 40 MILLIGRAM, QD
     Route: 065
  6. PREDNISOLONE [Suspect]
     Active Substance: PREDNISOLONE
     Dosage: 10 MILLIGRAM, QD (AFTER 4 MONTHS)
     Route: 065
  7. PREDNISOLONE [Suspect]
     Active Substance: PREDNISOLONE
     Dosage: 20 MILLIGRAM, QD
     Route: 065
  8. NEOSTIGMINE [Concomitant]
     Active Substance: NEOSTIGMINE
     Indication: Myasthenia gravis
     Dosage: 15 MILLIGRAM, BID
     Route: 065
  9. NEOSTIGMINE [Concomitant]
     Active Substance: NEOSTIGMINE
     Dosage: UNK (ONCE OR TWICE PER DAY, MOSTLY IN THE EVENING)
     Route: 030
  10. PYRIDOSTIGMINE [Concomitant]
     Active Substance: PYRIDOSTIGMINE
     Indication: Myasthenia gravis
     Dosage: 30 MILLIGRAM, QID (4 TIMES DAILY)
     Route: 065
  11. PYRIDOSTIGMINE [Concomitant]
     Active Substance: PYRIDOSTIGMINE
     Dosage: 30 MILLIGRAM, QID (6 HOURLY)
     Route: 065

REACTIONS (6)
  - Venoocclusive liver disease [Recovered/Resolved]
  - Drug-induced liver injury [Recovered/Resolved]
  - Lower respiratory tract infection [Unknown]
  - Myasthenia gravis [Recovering/Resolving]
  - COVID-19 [Unknown]
  - Staphylococcal skin infection [Unknown]
